FAERS Safety Report 10497446 (Version 2)
Quarter: 2015Q1

REPORT INFORMATION
  Report Type: Spontaneous
  Country: US (occurrence: US)
  Receive Date: 20141006
  Receipt Date: 20150316
  Transmission Date: 20150720
  Serious: No
  Sender: FDA-Public Use
  Company Number: US-JNJFOC-20141002118

PATIENT
  Sex: Male

DRUGS (5)
  1. RISPERDAL [Suspect]
     Active Substance: RISPERIDONE
     Indication: TOURETTE^S DISORDER
     Route: 048
  2. RITALIN [Concomitant]
     Active Substance: METHYLPHENIDATE HYDROCHLORIDE
     Route: 065
  3. CLONIDINE. [Concomitant]
     Active Substance: CLONIDINE
     Route: 065
  4. ADDERALL [Concomitant]
     Active Substance: AMPHETAMINE ASPARTATE\AMPHETAMINE SULFATE\DEXTROAMPHETAMINE SACCHARATE\DEXTROAMPHETAMINE SULFATE
     Route: 065
  5. TENEX [Concomitant]
     Active Substance: GUANFACINE HYDROCHLORIDE
     Route: 065

REACTIONS (5)
  - Hyperprolactinaemia [Unknown]
  - Product use issue [Unknown]
  - Obesity [Unknown]
  - Gynaecomastia [Unknown]
  - Galactorrhoea [Unknown]
